FAERS Safety Report 13721148 (Version 1)
Quarter: 2017Q3

REPORT INFORMATION
  Report Type: Spontaneous
  Country: US (occurrence: US)
  Receive Date: 20170705
  Receipt Date: 20170705
  Transmission Date: 20171127
  Serious: Yes (Life-Threatening, Hospitalization)
  Sender: FDA-Public Use
  Company Number: None

PATIENT
  Age: 42 Year
  Sex: Female
  Weight: 59 kg

DRUGS (1)
  1. FLUCONAZOLE. [Suspect]
     Active Substance: FLUCONAZOLE
     Indication: OESOPHAGEAL CANDIDIASIS

REACTIONS (4)
  - Blister [None]
  - Rash [None]
  - Stevens-Johnson syndrome [None]
  - Swelling [None]

NARRATIVE: CASE EVENT DATE: 20170529
